FAERS Safety Report 5772926-8 (Version None)
Quarter: 2008Q2

REPORT INFORMATION
  Report Type: 
  Country: None (occurrence: None)
  Receive Date: 20080613
  Receipt Date: 20080605
  Transmission Date: 20081010
  Serious: Yes (Hospitalization)
  Sender: FDA-Public Use
  Company Number: SE-MERCK-0806SWE00013

PATIENT
  Age: 83 Year
  Sex: Male

DRUGS (12)
  1. COZAAR [Suspect]
     Indication: ESSENTIAL HYPERTENSION
     Route: 065
     Dates: end: 20080215
  2. GLYBURIDE [Suspect]
     Indication: DIABETES MELLITUS
     Route: 065
     Dates: end: 20080215
  3. ALLOPURINOL [Suspect]
     Route: 065
     Dates: end: 20080215
  4. FUROSEMIDE [Suspect]
     Route: 065
     Dates: end: 20080215
  5. SPIRONOLACTONE [Suspect]
     Route: 065
     Dates: end: 20080215
  6. TRAMADOL HYDROCHLORIDE [Concomitant]
     Route: 065
  7. VITAMIN B (UNSPECIFIED) [Concomitant]
     Route: 065
  8. GABAPENTIN [Concomitant]
     Route: 065
  9. ACETAMINOPHEN [Concomitant]
     Route: 065
  10. ALFACALCIDOL [Concomitant]
     Route: 065
  11. ACETYLCYSTEINE [Concomitant]
     Route: 065
  12. KETOBEMIDONE HYDROCHLORIDE [Concomitant]
     Route: 065

REACTIONS (2)
  - HYPOGLYCAEMIA [None]
  - RENAL FAILURE [None]
